FAERS Safety Report 13211895 (Version 2)
Quarter: 2017Q1

REPORT INFORMATION
  Report Type: Spontaneous
  Country: CH (occurrence: CH)
  Receive Date: 20170210
  Receipt Date: 20170228
  Transmission Date: 20170428
  Serious: Yes (Death)
  Sender: FDA-Public Use
  Company Number: CH-LPDUSPRD-20170138

PATIENT
  Age: 91 Year
  Sex: Female

DRUGS (1)
  1. FERINJECT [Suspect]
     Active Substance: FERRIC CARBOXYMALTOSE
     Dosage: 500 MG
     Route: 041
     Dates: start: 2016, end: 2016

REACTIONS (2)
  - Cardiac failure [Unknown]
  - Euthanasia [Fatal]

NARRATIVE: CASE EVENT DATE: 2016
